FAERS Safety Report 7371897-0 (Version None)
Quarter: 2011Q1

REPORT INFORMATION
  Report Type: 
  Country: None (occurrence: None)
  Receive Date: 20110324
  Receipt Date: 20110317
  Transmission Date: 20110831
  Serious: Yes (Death)
  Sender: FDA-Public Use
  Company Number: US-ROCHE-766637

PATIENT
  Age: 38 Year
  Sex: Male

DRUGS (8)
  1. CLONAZEPAM [Suspect]
     Route: 048
  2. PARACETAMOL [Suspect]
     Dosage: DRUG: ACETAMINOPHEN
     Route: 048
  3. CAFFEINE [Suspect]
     Route: 048
  4. LAMOTRIGINE [Suspect]
     Route: 048
  5. ALLOPURINOL [Suspect]
     Route: 048
  6. AMLODIPINE BESYLATE AND ATORVASTATIN CALIUM [Suspect]
     Route: 048
  7. METAXALONE [Suspect]
     Route: 048
  8. SALICYLATE [Suspect]
     Route: 048

REACTIONS (1)
  - TOXICITY TO VARIOUS AGENTS [None]
